FAERS Safety Report 5141610-6 (Version None)
Quarter: 2006Q4

REPORT INFORMATION
  Report Type: 
  Country: None (occurrence: None)
  Receive Date: 20061026
  Receipt Date: 20061024
  Transmission Date: 20070319
  Serious: Yes (Other)
  Sender: FDA-Public Use
  Company Number: 008938

PATIENT
  Sex: Female

DRUGS (6)
  1. MEDROXYPROGESTERONE ACETATE [Suspect]
     Dosage: ORAL
     Route: 048
     Dates: start: 19900101, end: 20020701
  2. CYCRIN [Suspect]
     Dosage: ORAL
     Route: 048
     Dates: start: 19900101, end: 20020701
  3. ESTRATEST [Suspect]
     Dosage: ORAL
     Dates: start: 19900101, end: 20020701
  4. PREMARIN [Suspect]
     Dosage: ORAL
     Dates: start: 19900101, end: 20020701
  5. PREMPHASE (PREMARIN;CYCRIN 14/14) [Suspect]
     Dosage: ORAL
     Route: 048
     Dates: start: 19900101, end: 20020701
  6. PROVERA [Suspect]
     Dosage: ORAL
     Route: 048
     Dates: start: 19900101, end: 20020701

REACTIONS (1)
  - BREAST CANCER FEMALE [None]
